FAERS Safety Report 7958568-4 (Version None)
Quarter: 2011Q4

REPORT INFORMATION
  Report Type: 
  Country: None (occurrence: None)
  Receive Date: 20111206
  Receipt Date: 20111128
  Transmission Date: 20120403
  Serious: No
  Sender: FDA-Public Use
  Company Number: US-BIOGENIDEC-2011BI044072

PATIENT
  Sex: Female

DRUGS (8)
  1. TYSABRI [Suspect]
     Route: 042
     Dates: end: 20110901
  2. WELLBUTRIN [Concomitant]
     Indication: DEPRESSION
     Dates: start: 20080101
  3. TYSABRI [Suspect]
     Route: 042
     Dates: end: 20100310
  4. TYSABRI [Suspect]
     Indication: MULTIPLE SCLEROSIS
     Route: 042
     Dates: start: 20061025
  5. AMPYRA [Concomitant]
     Indication: MEMORY IMPAIRMENT
  6. AMPYRA [Concomitant]
     Indication: GAIT DISTURBANCE
  7. DEPAKOTE [Concomitant]
     Indication: BIPOLAR DISORDER
  8. DEPAKOTE [Concomitant]
     Indication: PAIN

REACTIONS (12)
  - DEPRESSION [None]
  - INTERVERTEBRAL DISC PROTRUSION [None]
  - ANXIETY [None]
  - INTERVERTEBRAL DISC DEGENERATION [None]
  - VAGINAL HAEMORRHAGE [None]
  - FATIGUE [None]
  - SINUSITIS [None]
  - ABDOMINAL DISTENSION [None]
  - URINARY TRACT INFECTION [None]
  - ADNEXA UTERI PAIN [None]
  - DECREASED APPETITE [None]
  - DRUG HYPERSENSITIVITY [None]
